FAERS Safety Report 6113788-9 (Version None)
Quarter: 2009Q1

REPORT INFORMATION
  Report Type: 
  Country: None (occurrence: None)
  Receive Date: 20090312
  Receipt Date: 20090310
  Transmission Date: 20090719
  Serious: Yes (Life-Threatening, Hospitalization, Disabling)
  Sender: FDA-Public Use
  Company Number: JP-B.I. PHARMACEUTICALS,INC./RIDGEFIELD-2009-BP-00666NB

PATIENT
  Sex: Male

DRUGS (7)
  1. SPIRIVA [Suspect]
     Indication: CHRONIC OBSTRUCTIVE PULMONARY DISEASE
     Dosage: 18MCG
     Route: 055
     Dates: start: 20081008, end: 20081024
  2. ZITHROMAX [Suspect]
     Route: 048
  3. FLUTIDE [Concomitant]
     Indication: ASTHMA
     Route: 055
  4. ZYRTEC [Concomitant]
     Dosage: 10MG
     Route: 048
  5. ONON [Concomitant]
     Dosage: 450MG
     Route: 048
  6. UNIPHYL LA [Concomitant]
     Indication: ASTHMA
     Dosage: 400MG
     Route: 048
  7. MEPTIN [Concomitant]
     Indication: ASTHMA
     Dosage: 50MCG
     Route: 048

REACTIONS (2)
  - ALVEOLITIS ALLERGIC [None]
  - DRUG ERUPTION [None]
